FAERS Safety Report 17579296 (Version 1)
Quarter: 2020Q1

REPORT INFORMATION
  Report Type: Spontaneous
  Country: SE (occurrence: SE)
  Receive Date: 20200325
  Receipt Date: 20200325
  Transmission Date: 20200409
  Serious: Yes (Disabling)
  Sender: FDA-Public Use
  Company Number: SE-GLAXOSMITHKLINE-SE2020GSK051542

PATIENT
  Age: 45 Year
  Sex: Female
  Weight: 53 kg

DRUGS (2)
  1. NEOTIGASON [Suspect]
     Active Substance: ACITRETIN
     Indication: PSORIASIS
     Dosage: UNK (KAPSEL, HARD(ACITRETIN),UNKNOWN)
     Route: 065
     Dates: start: 201907
  2. NEOTIGASON [Suspect]
     Active Substance: ACITRETIN
     Indication: PALMOPLANTAR PUSTULOSIS

REACTIONS (7)
  - Fatigue [Recovered/Resolved with Sequelae]
  - Abdominal pain [Recovered/Resolved with Sequelae]
  - Diarrhoea [Recovered/Resolved with Sequelae]
  - Condition aggravated [Recovered/Resolved with Sequelae]
  - Diabetic complication [Recovered/Resolved with Sequelae]
  - Palmoplantar pustulosis [Recovered/Resolved with Sequelae]
  - Muscle twitching [Recovered/Resolved with Sequelae]

NARRATIVE: CASE EVENT DATE: 20191125
